FAERS Safety Report 5164770-X (Version None)
Quarter: 2006Q4

REPORT INFORMATION
  Report Type: 
  Country: None (occurrence: None)
  Receive Date: 20061205
  Receipt Date: 20060906
  Transmission Date: 20070319
  Serious: Yes (Other)
  Sender: FDA-Public Use
  Company Number: DE-GLAXOSMITHKLINE-D0050814A

PATIENT
  Age: 46 Year
  Sex: Female
  Weight: 87 kg

DRUGS (3)
  1. FLUTIDE DISKUS [Suspect]
     Indication: ASTHMA
     Route: 065
     Dates: start: 20050110, end: 20060101
  2. AARANE [Concomitant]
     Indication: SEASONAL ALLERGY
     Route: 065
     Dates: start: 20060601, end: 20060701
  3. LETIZEN [Concomitant]
     Indication: SEASONAL ALLERGY
     Route: 065
     Dates: start: 20060601, end: 20060701

REACTIONS (3)
  - APHONIA [None]
  - DYSPHONIA [None]
  - THROAT IRRITATION [None]
